FAERS Safety Report 22993525 (Version 8)
Quarter: 2025Q3

REPORT INFORMATION
  Report Type: Spontaneous
  Country: JP (occurrence: JP)
  Receive Date: 20230927
  Receipt Date: 20250801
  Transmission Date: 20251021
  Serious: Yes (Life-Threatening, Disabling, Other)
  Sender: ALEXION PHARMACEUTICALS
  Company Number: 2023A216188

PATIENT
  Age: 74 Year
  Sex: Male

DRUGS (8)
  1. ANDEXXA [Suspect]
     Active Substance: ANDEXANET ALFA
     Indication: Extradural haematoma
     Dates: start: 20230406, end: 20230406
  2. ANDEXXA [Suspect]
     Active Substance: ANDEXANET ALFA
  3. EDOXABAN TOSYLATE [Concomitant]
     Active Substance: EDOXABAN TOSYLATE
  4. CANDESARTAN [Concomitant]
     Active Substance: CANDESARTAN
  5. AMLODIPINE [Concomitant]
     Active Substance: AMLODIPINE BESYLATE
  6. INDAPAMIDE [Concomitant]
     Active Substance: INDAPAMIDE
  7. BISOPROLOL [Concomitant]
     Active Substance: BISOPROLOL
  8. ROSUVASTATIN [Concomitant]
     Active Substance: ROSUVASTATIN

REACTIONS (5)
  - Cerebral infarction [Not Recovered/Not Resolved]
  - Renal artery stenosis [Recovering/Resolving]
  - Myocardial infarction [Not Recovered/Not Resolved]
  - Respiratory distress [Unknown]
  - Pneumonia aspiration [Unknown]

NARRATIVE: CASE EVENT DATE: 20230407
